FAERS Safety Report 6115086-6 (Version None)
Quarter: 2009Q1

REPORT INFORMATION
  Report Type: 
  Country: None (occurrence: None)
  Receive Date: 20090313
  Receipt Date: 20090310
  Transmission Date: 20090719
  Serious: Yes (Hospitalization)
  Sender: FDA-Public Use
  Company Number: B0564249A

PATIENT
  Age: 61 Year
  Sex: Female

DRUGS (4)
  1. ZANTAC [Suspect]
     Indication: DRUG USE FOR UNKNOWN INDICATION
     Dosage: 100MG PER DAY
     Route: 042
     Dates: start: 20081216, end: 20090224
  2. ZANTAC [Suspect]
     Route: 042
     Dates: start: 20090303
  3. DECADRON [Concomitant]
     Indication: DRUG USE FOR UNKNOWN INDICATION
     Dates: start: 20081216, end: 20090224
  4. UNKNOWN DRUG [Concomitant]
     Indication: DRUG USE FOR UNKNOWN INDICATION
     Route: 042
     Dates: start: 20081216, end: 20090224

REACTIONS (6)
  - ANAPHYLACTIC SHOCK [None]
  - FACE OEDEMA [None]
  - HYPOTENSION [None]
  - NAUSEA [None]
  - SNEEZING [None]
  - VOMITING [None]
